FAERS Safety Report 18311114 (Version 2)
Quarter: 2020Q4

REPORT INFORMATION
  Report Type: Report from Study
  Country: US (occurrence: US)
  Receive Date: 20200924
  Receipt Date: 20201026
  Transmission Date: 20210113
  Serious: Yes (Hospitalization)
  Sender: FDA-Public Use
  Company Number: US-ROCHE-2592440

PATIENT
  Age: 72 Year
  Sex: Female

DRUGS (14)
  1. LENALIDOMIDE [Suspect]
     Active Substance: LENALIDOMIDE
     Indication: B-CELL LYMPHOMA REFRACTORY
     Dosage: DATE OF MOST RECENT DOSE OF VENETOCLAX ADMINISTERED PRIOR TO ONSET OF ADVERSE EVENT ON 25/APR/2020.
     Route: 048
     Dates: start: 20200327
  2. LEVOTHYROXINE. [Concomitant]
     Active Substance: LEVOTHYROXINE
  3. VENETOCLAX. [Suspect]
     Active Substance: VENETOCLAX
     Indication: B-CELL LYMPHOMA REFRACTORY
     Dosage: DATE OF MOST RECENT DOSE OF VENETOCLAX ADMINISTERED PRIOR TO ONSET OF ADVERSE EVENT ON 25/APR/2020.
     Route: 048
     Dates: start: 20200328
  4. MAGNESIUM [Concomitant]
     Active Substance: MAGNESIUM
  5. ALBUTEROL. [Concomitant]
     Active Substance: ALBUTEROL
  6. IBRUTINIB [Suspect]
     Active Substance: IBRUTINIB
     Indication: B-CELL LYMPHOMA REFRACTORY
     Dosage: DATE OF MOST RECENT DOSE OF VENETOCLAX ADMINISTERED PRIOR TO ONSET OF ADVERSE EVENT ON 25/APR/2020.
     Route: 048
     Dates: start: 20200327
  7. VALACYCLOVIR [Concomitant]
     Active Substance: VALACYCLOVIR HYDROCHLORIDE
  8. ZINC. [Concomitant]
     Active Substance: ZINC
  9. CETIRIZINE [Concomitant]
     Active Substance: CETIRIZINE HYDROCHLORIDE
  10. PATANOL [Concomitant]
     Active Substance: OLOPATADINE HYDROCHLORIDE
  11. PREDNISONE. [Suspect]
     Active Substance: PREDNISONE
     Indication: B-CELL LYMPHOMA REFRACTORY
     Dosage: DATE OF MOST RECENT DOSE OF PREDNISONE ADMINISTERED PRIOR TO ONSET OF AE ON 23/APR/2020?100 MG PO ON
     Route: 048
     Dates: start: 20200327
  12. OBINUTUZUMAB. [Suspect]
     Active Substance: OBINUTUZUMAB
     Indication: B-CELL LYMPHOMA REFRACTORY
     Dosage: 1000MG OBINUTUZUMAB IV ON DAYS 1 AND 2/Q3W,
     Route: 042
     Dates: start: 20200327
  13. LISINOPRIL. [Concomitant]
     Active Substance: LISINOPRIL
  14. CHOLECALCIFEROL [Concomitant]
     Active Substance: CHOLECALCIFEROL

REACTIONS (1)
  - Atrial fibrillation [Not Recovered/Not Resolved]

NARRATIVE: CASE EVENT DATE: 20200425
